FAERS Safety Report 15669374 (Version 25)
Quarter: 2021Q3

REPORT INFORMATION
  Report Type: Spontaneous
  Country: CA (occurrence: CA)
  Receive Date: 20181129
  Receipt Date: 20210924
  Transmission Date: 20211014
  Serious: Yes (Death, Hospitalization, Other)
  Sender: FDA-Public Use
  Company Number: CA-CELLTRION INC.-2018CA018019

PATIENT

DRUGS (43)
  1. INFLECTRA [Suspect]
     Active Substance: INFLIXIMAB-DYYB
     Dosage: 750 MG,  EVERY 6 WEEKS
     Route: 042
     Dates: start: 20191217
  2. DIPHENHYDRAMINE. [Concomitant]
     Active Substance: DIPHENHYDRAMINE
     Dosage: 50 MG
     Route: 042
     Dates: start: 20200831, end: 20200831
  3. LEVODOPA [Concomitant]
     Active Substance: LEVODOPA
     Dosage: 4 DF (TABLETS), DAILY (UNSURE OF MG)
     Route: 048
  4. PREDNISONE. [Concomitant]
     Active Substance: PREDNISONE
     Dosage: 8 DF (TABLETS), DAILY (5MG TAB)
     Route: 048
  5. INFLECTRA [Suspect]
     Active Substance: INFLIXIMAB-DYYB
     Dosage: 750 MG, EVERY 8 WEEKS
     Route: 042
     Dates: start: 20190209, end: 20190209
  6. INFLECTRA [Suspect]
     Active Substance: INFLIXIMAB-DYYB
     Dosage: 750 MG EVERY 6 WEEKS
     Route: 042
     Dates: start: 20200720
  7. HUMULIN R [Concomitant]
     Active Substance: INSULIN HUMAN
     Dosage: 1 DF, DOSAGE NOT AVAILABLE
     Route: 065
  8. INFLECTRA [Suspect]
     Active Substance: INFLIXIMAB-DYYB
     Dosage: 500 MG, 0, 2, 6, THEN EVERY 8 WEEKS
     Route: 042
     Dates: start: 20181203
  9. INFLECTRA [Suspect]
     Active Substance: INFLIXIMAB-DYYB
     Dosage: 750 MG,  EVERY 6 WEEKS
     Route: 042
     Dates: start: 20191105
  10. INFLECTRA [Suspect]
     Active Substance: INFLIXIMAB-DYYB
     Dosage: 750 MG EVERY 6 WEEKS
     Route: 042
     Dates: start: 20210621
  11. AZATHIOPRINE. [Concomitant]
     Active Substance: AZATHIOPRINE
     Dosage: 15 MG, 1X/DAY
     Route: 048
  12. EFFEXOR [Concomitant]
     Active Substance: VENLAFAXINE HYDROCHLORIDE
     Dosage: 40 MG, DAILY
     Route: 048
  13. ENOXAPARIN [Concomitant]
     Active Substance: ENOXAPARIN
     Dosage: 40MG/0.4 ML SYRINGE
     Route: 065
  14. PREDNISONE. [Concomitant]
     Active Substance: PREDNISONE
     Dosage: 40 MG, 1X/DAY
     Route: 048
  15. INFLECTRA [Suspect]
     Active Substance: INFLIXIMAB-DYYB
     Dosage: 500 MG, 0, 2, 6, THEN EVERY 8 WEEKS
     Route: 042
     Dates: start: 20180201
  16. INFLECTRA [Suspect]
     Active Substance: INFLIXIMAB-DYYB
     Dosage: 500 MG, 0, 2, 6, THEN EVERY 8 WEEKS
     Route: 042
     Dates: start: 20180924
  17. INFLECTRA [Suspect]
     Active Substance: INFLIXIMAB-DYYB
     Dosage: 750 MG,  EVERY 6 WEEKS
     Route: 042
     Dates: start: 20201013
  18. DIPHENHYDRAMINE. [Concomitant]
     Active Substance: DIPHENHYDRAMINE
     Dosage: 50 MG
     Route: 065
     Dates: start: 20200720, end: 20200720
  19. VIT D [Concomitant]
     Active Substance: VITAMIN D NOS
     Dosage: 2000 UG, 1X/DAY
     Route: 048
  20. INFLECTRA [Suspect]
     Active Substance: INFLIXIMAB-DYYB
     Indication: COLITIS ULCERATIVE
     Dosage: 7.5 MG/KG EVERY 6 WEEKS
     Route: 042
     Dates: start: 201708
  21. INFLECTRA [Suspect]
     Active Substance: INFLIXIMAB-DYYB
     Dosage: 500 MG, 0, 2, 6, THEN EVERY 8 WEEKS
     Route: 042
     Dates: start: 20180409
  22. INFLECTRA [Suspect]
     Active Substance: INFLIXIMAB-DYYB
     Dosage: 5 MG/KG, UNK
     Route: 042
     Dates: start: 20180606
  23. INFLECTRA [Suspect]
     Active Substance: INFLIXIMAB-DYYB
     Dosage: 750 MG, EVERY 6 WEEKS
     Route: 042
     Dates: start: 20190322
  24. INFLECTRA [Suspect]
     Active Substance: INFLIXIMAB-DYYB
     Dosage: 750 MG  EVERY 6 WEEKS
     Route: 042
     Dates: start: 20190923
  25. INFLECTRA [Suspect]
     Active Substance: INFLIXIMAB-DYYB
     Dosage: 750 MG,  EVERY 6 WEEKS
     Route: 042
     Dates: start: 20200312
  26. ASA [Concomitant]
     Active Substance: ASPIRIN
     Dosage: 1 DF (TABLET), DAILY (81MG)
     Route: 048
  27. GLUCAGON. [Concomitant]
     Active Substance: GLUCAGON
     Dosage: 1 MG, FIOLE (FREQUENCY NOT AVAILABLE )
     Route: 065
  28. LEVODOPA [Concomitant]
     Active Substance: LEVODOPA
     Dosage: 1 DF, DOSAGE NOT AVAILABLE
     Route: 048
  29. INFLECTRA [Suspect]
     Active Substance: INFLIXIMAB-DYYB
     Dosage: 750 MG,  EVERY 6 WEEKS
     Route: 042
     Dates: start: 20190729
  30. INFLECTRA [Suspect]
     Active Substance: INFLIXIMAB-DYYB
     Dosage: 750 MG,  EVERY 6 WEEKS
     Route: 042
     Dates: start: 20200129
  31. INFLECTRA [Suspect]
     Active Substance: INFLIXIMAB-DYYB
     Dosage: 750 MG EVERY 6 WEEKS
     Route: 042
     Dates: start: 20210329
  32. AZATHIOPRINE. [Concomitant]
     Active Substance: AZATHIOPRINE
     Dosage: 3 DF (TABLETS), DAILY (5 MG TAB)
     Route: 048
  33. DIPHENHYDRAMINE. [Concomitant]
     Active Substance: DIPHENHYDRAMINE
     Dosage: 50 MG
     Route: 042
     Dates: start: 20200427
  34. INFLECTRA [Suspect]
     Active Substance: INFLIXIMAB-DYYB
     Dosage: 750 MG, EVERY 6 WEEKS
     Route: 042
     Dates: start: 20190614
  35. INFLECTRA [Suspect]
     Active Substance: INFLIXIMAB-DYYB
     Dosage: 750 MG,  EVERY 6 WEEKS
     Route: 042
     Dates: start: 20200427
  36. INFLECTRA [Suspect]
     Active Substance: INFLIXIMAB-DYYB
     Dosage: 750 MG,  EVERY 6 WEEKS
     Route: 042
     Dates: start: 20200608
  37. INFLECTRA [Suspect]
     Active Substance: INFLIXIMAB-DYYB
     Dosage: 600 MG
     Route: 042
     Dates: start: 20200831
  38. INFLECTRA [Suspect]
     Active Substance: INFLIXIMAB-DYYB
     Dosage: 750 MG EVERY 6 WEEKS
     Route: 042
     Dates: start: 20210510
  39. HUMULIN R [Concomitant]
     Active Substance: INSULIN HUMAN
     Dosage: 100 UNITS/ML
     Route: 065
  40. TEMAZEPAM. [Concomitant]
     Active Substance: TEMAZEPAM
     Dosage: UNK, AS NEEDED 1?2 CAPS (CAPSULE), BEDTIME, AS NEEDED (15MG CAP)
     Route: 048
  41. INFLECTRA [Suspect]
     Active Substance: INFLIXIMAB-DYYB
     Dosage: 500 MG, 0, 2, 6, THEN EVERY 8 WEEKS
     Route: 042
     Dates: start: 20171220, end: 20181203
  42. DIPHENHYDRAMINE. [Concomitant]
     Active Substance: DIPHENHYDRAMINE
     Indication: PREMEDICATION
     Dosage: 25 MG, UNK
     Dates: start: 20181203
  43. VIT D [Concomitant]
     Active Substance: VITAMIN D NOS
     Dosage: 2 DF (TABLETS), DAILY (1000MCG TAB)
     Route: 048

REACTIONS (21)
  - Fall [Unknown]
  - Blood pressure increased [Unknown]
  - Confusional state [Unknown]
  - Regurgitation [Not Recovered/Not Resolved]
  - Inappropriate schedule of product administration [Unknown]
  - Gait disturbance [Unknown]
  - Joint injury [Unknown]
  - Off label use [Unknown]
  - Parkinson^s disease [Not Recovered/Not Resolved]
  - Dehydration [Unknown]
  - Diarrhoea [Recovered/Resolved]
  - Heart rate increased [Not Recovered/Not Resolved]
  - Condition aggravated [Unknown]
  - Poor venous access [Unknown]
  - Feeling abnormal [Unknown]
  - Asthenia [Unknown]
  - Haematochezia [Unknown]
  - Muscular weakness [Unknown]
  - Incorrect dose administered [Unknown]
  - Death [Fatal]
  - Malaise [Unknown]

NARRATIVE: CASE EVENT DATE: 201708
